FAERS Safety Report 16834077 (Version 1)
Quarter: 2019Q3

REPORT INFORMATION
  Report Type: Spontaneous
  Country: US (occurrence: US)
  Receive Date: 20190920
  Receipt Date: 20190920
  Transmission Date: 20191005
  Serious: No
  Sender: FDA-Public Use
  Company Number: PHEH2019US037774

PATIENT
  Age: 63 Year
  Sex: Female

DRUGS (1)
  1. MAYZENT [Suspect]
     Active Substance: SIPONIMOD
     Indication: PRODUCT USED FOR UNKNOWN INDICATION
     Dosage: UNK
     Route: 065

REACTIONS (9)
  - Memory impairment [Unknown]
  - Nervousness [Unknown]
  - Constipation [Unknown]
  - Migraine [Unknown]
  - Fatigue [Unknown]
  - Muscular weakness [Unknown]
  - Abdominal distension [Unknown]
  - Anger [Unknown]
  - Feeling abnormal [Unknown]
